FAERS Safety Report 5609008-1 (Version None)
Quarter: 2008Q1

REPORT INFORMATION
  Report Type: 
  Country: None (occurrence: None)
  Receive Date: 20080131
  Receipt Date: 20080124
  Transmission Date: 20080703
  Serious: Yes (Other)
  Sender: FDA-Public Use
  Company Number: PHBS2007JP21548

PATIENT
  Age: 62 Year
  Sex: Male

DRUGS (9)
  1. DIOVAN [Suspect]
     Indication: HYPERTENSION
     Dosage: 40 MG, QD
     Route: 048
     Dates: start: 20071217, end: 20071222
  2. LIPITOR [Concomitant]
     Indication: HYPERLIPIDAEMIA
     Dosage: 5 MG, UNK
     Dates: end: 20071222
  3. AMLODIPINE BESYLATE [Concomitant]
     Dosage: 5 MG, UNK
     Dates: start: 20071217
  4. ROCEPHIN [Suspect]
     Dosage: 2 G, UNK
     Dates: start: 20071218, end: 20071222
  5. AMIKACIN SULFATE [Concomitant]
     Indication: PNEUMONIA
     Dosage: 100 MG, UNK
     Dates: start: 20071218, end: 20071231
  6. NORVASC [Concomitant]
     Indication: HYPERTENSION
     Dosage: 5 MG, UNK
     Route: 048
     Dates: end: 20071216
  7. TANATRIL [Concomitant]
     Indication: HYPERTENSION
     Dosage: 5 MG, UNK
     Route: 048
     Dates: end: 20071216
  8. BROACT [Concomitant]
     Indication: PNEUMONIA
     Dosage: 2 G, UNK
     Dates: start: 20071211, end: 20071217
  9. CIPROFLOXACIN [Concomitant]
     Indication: PNEUMONIA
     Dosage: 600 MG, UNK
     Dates: start: 20071222, end: 20080104

REACTIONS (10)
  - ALANINE AMINOTRANSFERASE INCREASED [None]
  - ASPARTATE AMINOTRANSFERASE INCREASED [None]
  - BLOOD ALKALINE PHOSPHATASE INCREASED [None]
  - BLOOD GLUCOSE INCREASED [None]
  - GAMMA-GLUTAMYLTRANSFERASE INCREASED [None]
  - HAEMOGLOBIN DECREASED [None]
  - HEPATIC ENZYME INCREASED [None]
  - PLATELET COUNT DECREASED [None]
  - THROMBOCYTOPENIA [None]
  - WHITE BLOOD CELL COUNT INCREASED [None]
